FAERS Safety Report 9240657 (Version 1)
Quarter: 2013Q2

REPORT INFORMATION
  Report Type: Spontaneous
  Country: US (occurrence: US)
  Receive Date: 20130418
  Receipt Date: 20130418
  Transmission Date: 20140414
  Serious: Yes (Death)
  Sender: FDA-Public Use
  Company Number: US-SANOFI-AVENTIS-2012SA075491

PATIENT
  Sex: Female

DRUGS (2)
  1. LOVENOX [Suspect]
     Indication: GASTROINTESTINAL TUBE INSERTION
     Route: 065
  2. WARFARIN [Suspect]
     Route: 065

REACTIONS (2)
  - Gastrointestinal haemorrhage [Fatal]
  - International normalised ratio increased [Fatal]
